FAERS Safety Report 24351993 (Version 1)
Quarter: 2024Q3

REPORT INFORMATION
  Report Type: Report from Study
  Country: US (occurrence: US)
  Receive Date: 20240923
  Receipt Date: 20240923
  Transmission Date: 20241017
  Serious: No
  Sender: ROCHE
  Company Number: US-ROCHE-3036839

PATIENT
  Age: 45 Year
  Sex: Female

DRUGS (13)
  1. HERCEPTIN [Suspect]
     Active Substance: TRASTUZUMAB
     Indication: Breast cancer female
     Dosage: 399 MG (3ML), DATE OF SERVICE: 28/JUN/2022, 31/OCT/2023, 21/NOV/2023
     Route: 041
  2. HERCEPTIN [Suspect]
     Active Substance: TRASTUZUMAB
     Indication: Breast cancer female
  3. PERJETA [Suspect]
     Active Substance: PERTUZUMAB
     Indication: Breast cancer female
     Dosage: 1 VIAL DATE OF SERVICE: 28/JUN/2022, 31/OCT/2023, 21/NOV/2023
     Route: 042
  4. PERJETA [Suspect]
     Active Substance: PERTUZUMAB
     Indication: Breast cancer female
  5. LETROZOLE [Concomitant]
     Active Substance: LETROZOLE
  6. EMLA [Concomitant]
     Active Substance: LIDOCAINE\PRILOCAINE
  7. IBUPROFEN [Concomitant]
     Active Substance: IBUPROFEN
  8. COLACE [Concomitant]
     Active Substance: DOCUSATE SODIUM
  9. MAGIC MOUTHWASH [DIPHENHYDRAMINE;LIDOCAINE] [Concomitant]
  10. CALCIUM [Concomitant]
     Active Substance: CALCIUM
  11. ZOFRAN [Concomitant]
     Active Substance: ONDANSETRON HYDROCHLORIDE
  12. TAXOTERE [Concomitant]
     Active Substance: DOCETAXEL
  13. CARBOPLATIN [Concomitant]
     Active Substance: CARBOPLATIN

REACTIONS (1)
  - Drug hypersensitivity [Unknown]
